FAERS Safety Report 4530462-0 (Version None)
Quarter: 2004Q4

REPORT INFORMATION
  Report Type: 
  Country: None (occurrence: None)
  Receive Date: 20041215
  Receipt Date: 20041203
  Transmission Date: 20050328
  Serious: Yes (Hospitalization, Other)
  Sender: FDA-Public Use
  Company Number: 2004104930

PATIENT
  Sex: Female

DRUGS (1)
  1. CELEBREX [Suspect]
     Indication: ARTHRITIS
     Dosage: 400 MG (200 MG, 2 IN 1D)
     Dates: end: 20040101

REACTIONS (4)
  - ARTHRALGIA [None]
  - BILE DUCT STONE [None]
  - HEPATOCELLULAR DAMAGE [None]
  - PAIN IN EXTREMITY [None]
